FAERS Safety Report 11083970 (Version 1)
Quarter: 2015Q2

REPORT INFORMATION
  Report Type: Spontaneous
  Country: JP (occurrence: JP)
  Receive Date: 20150501
  Receipt Date: 20150501
  Transmission Date: 20150821
  Serious: Yes (Death)
  Sender: FDA-Public Use
  Company Number: JP-MALLINCKRODT-T201502295

PATIENT
  Age: 64 Year
  Sex: Male

DRUGS (9)
  1. METHADONE [Suspect]
     Active Substance: METHADONE HYDROCHLORIDE
     Indication: PRODUCT USED FOR UNKNOWN INDICATION
     Dosage: 10 MG, (30 MG DAILY DOSE)
     Route: 048
     Dates: start: 20150218, end: 20150224
  2. CLARITHROMYCIN. [Concomitant]
     Active Substance: CLARITHROMYCIN
     Dosage: 400 MG
     Route: 048
     Dates: end: 20150304
  3. ZOLPIDEM [Concomitant]
     Active Substance: ZOLPIDEM\ZOLPIDEM TARTRATE
     Dosage: 5 MG
     Route: 048
     Dates: end: 20150304
  4. NAUZELIN [Concomitant]
     Active Substance: DOMPERIDONE
     Dosage: 30 MG
     Route: 048
     Dates: end: 20150304
  5. CALONAL [Concomitant]
     Active Substance: ACETAMINOPHEN
     Dosage: 2700 MG
     Route: 048
     Dates: end: 20150304
  6. RISPERIDONE. [Concomitant]
     Active Substance: RISPERIDONE
     Dosage: 1 MG
     Route: 048
     Dates: end: 20150304
  7. OXINORM [Concomitant]
     Active Substance: OXYCODONE HYDROCHLORIDE
     Dosage: 20 MG, PRN
     Dates: start: 20150218
  8. METHADONE [Suspect]
     Active Substance: METHADONE HYDROCHLORIDE
     Dosage: 15 MG, (45 MG DAILY DOSE)
     Route: 048
     Dates: start: 20150225, end: 20150504
  9. ETIZOLAM [Concomitant]
     Active Substance: ETIZOLAM
     Dosage: 0.5 MG
     Route: 048
     Dates: end: 20150304

REACTIONS (1)
  - Nasopharyngeal cancer [Fatal]
